FAERS Safety Report 21090501 (Version 1)
Quarter: 2022Q3

REPORT INFORMATION
  Report Type: Report from Study
  Country: US (occurrence: US)
  Receive Date: 20220715
  Receipt Date: 20220715
  Transmission Date: 20221027
  Serious: No
  Sender: FDA-Public Use
  Company Number: US-INCYTE CORPORATION-2022IN005663

PATIENT

DRUGS (1)
  1. JAKAFI [Suspect]
     Active Substance: RUXOLITINIB
     Indication: Chronic graft versus host disease
     Dosage: 10 MILLIGRAM, BID
     Route: 048

REACTIONS (7)
  - Disorientation [Unknown]
  - Flushing [Unknown]
  - Feeling hot [Unknown]
  - Visual impairment [Unknown]
  - Product use complaint [Unknown]
  - Fatigue [Unknown]
  - Dyspnoea [Unknown]
